FAERS Safety Report 4384736-7 (Version None)
Quarter: 2004Q2

REPORT INFORMATION
  Report Type: 
  Country: None (occurrence: None)
  Receive Date: 20040624
  Receipt Date: 20040624
  Transmission Date: 20050107
  Serious: Yes (Life-Threatening, Hospitalization)
  Sender: FDA-Public Use
  Company Number: None

PATIENT
  Sex: Female

DRUGS (1)
  1. CAPSAISIN CREAM OTC [Suspect]
     Indication: OSTEOARTHRITIS
     Dosage: TOPIAL OTC LOWER LEGS BID (USED 1
     Route: 061

REACTIONS (1)
  - LEUKOCYTOCLASTIC VASCULITIS [None]
